FAERS Safety Report 9425200 (Version 1)
Quarter: 2013Q3

REPORT INFORMATION
  Report Type: Spontaneous
  Country: FR (occurrence: FR)
  Receive Date: 20130729
  Receipt Date: 20130729
  Transmission Date: 20140515
  Serious: Yes (Other)
  Sender: FDA-Public Use
  Company Number: FR-SANOFI-AVENTIS-2013SA073659

PATIENT
  Age: 75 Year
  Sex: Male

DRUGS (3)
  1. PLAVIX [Suspect]
     Indication: PRODUCT USED FOR UNKNOWN INDICATION
     Route: 048
     Dates: start: 20111020, end: 201302
  2. PLAVIX [Suspect]
     Indication: PRODUCT USED FOR UNKNOWN INDICATION
     Route: 048
     Dates: start: 20130315
  3. XAGRID [Suspect]
     Indication: THROMBOCYTOPENIA
     Route: 048
     Dates: start: 20120327, end: 20130218

REACTIONS (4)
  - Renal failure chronic [Recovering/Resolving]
  - Blood creatinine increased [Recovering/Resolving]
  - Oedema peripheral [Unknown]
  - Eosinophilia [Recovered/Resolved]
